FAERS Safety Report 14675854 (Version 2)
Quarter: 2018Q2

REPORT INFORMATION
  Report Type: Spontaneous
  Country: US (occurrence: US)
  Receive Date: 20180323
  Receipt Date: 20180430
  Transmission Date: 20180711
  Serious: Yes (Death, Hospitalization)
  Sender: FDA-Public Use
  Company Number: US-JNJFOC-20180331499

PATIENT
  Age: 66 Year
  Sex: Male

DRUGS (18)
  1. SINGULAIR [Concomitant]
     Active Substance: MONTELUKAST SODIUM
  2. CENTRUM [Concomitant]
     Active Substance: VITAMINS
  3. PERCOCET [Concomitant]
     Active Substance: ACETAMINOPHEN\OXYCODONE HYDROCHLORIDE
  4. BREO ELLIPTA [Concomitant]
     Active Substance: FLUTICASONE FUROATE\VILANTEROL TRIFENATATE
  5. TOCOPHEROL [Concomitant]
     Active Substance: TOCOPHEROL
  6. LIDOCAINE. [Concomitant]
     Active Substance: LIDOCAINE
  7. ALLEGRA [Concomitant]
     Active Substance: FEXOFENADINE HYDROCHLORIDE
  8. CYMBALTA [Concomitant]
     Active Substance: DULOXETINE HYDROCHLORIDE
  9. CLINDAMYCIN. [Concomitant]
     Active Substance: CLINDAMYCIN
  10. OXYCODONE [Concomitant]
     Active Substance: OXYCODONE
  11. VITAMIN C [Concomitant]
     Active Substance: ASCORBIC ACID
  12. ZINC. [Concomitant]
     Active Substance: ZINC
  13. CARICA PAPAYA [Concomitant]
  14. PROVENTIL [Concomitant]
     Active Substance: ALBUTEROL
  15. IMBRUVICA [Suspect]
     Active Substance: IBRUTINIB
     Indication: MANTLE CELL LYMPHOMA
     Route: 048
  16. MS CONTIN [Concomitant]
     Active Substance: MORPHINE SULFATE
  17. VITAMIN D [Concomitant]
     Active Substance: CHOLECALCIFEROL
  18. NEXIUM [Concomitant]
     Active Substance: ESOMEPRAZOLE MAGNESIUM

REACTIONS (3)
  - Pneumonia [Fatal]
  - Opportunistic infection [Fatal]
  - Blood immunoglobulin G normal [Unknown]

NARRATIVE: CASE EVENT DATE: 201710
